FAERS Safety Report 10913388 (Version 3)
Quarter: 2015Q2

REPORT INFORMATION
  Report Type: Report from Study
  Country: US (occurrence: US)
  Receive Date: 20150313
  Receipt Date: 20150608
  Transmission Date: 20150821
  Serious: Yes (Hospitalization, Other)
  Sender: FDA-Public Use
  Company Number: US-ABBVIE-15K-163-1356253-00

PATIENT
  Age: 61 Year
  Sex: Female

DRUGS (4)
  1. HUMIRA [Suspect]
     Active Substance: ADALIMUMAB
     Route: 065
     Dates: start: 201409, end: 20150213
  2. HUMIRA [Suspect]
     Active Substance: ADALIMUMAB
     Indication: CROHN^S DISEASE
     Route: 065
     Dates: start: 20140722, end: 20140722
  3. HUMIRA [Suspect]
     Active Substance: ADALIMUMAB
     Route: 065
     Dates: start: 201407, end: 201407
  4. HUMIRA [Suspect]
     Active Substance: ADALIMUMAB
     Route: 065
     Dates: start: 201408, end: 201409

REACTIONS (9)
  - Large intestinal stenosis [Unknown]
  - Abdominal adhesions [Unknown]
  - Cardiac arrest [Recovered/Resolved]
  - Faecal incontinence [Unknown]
  - Fistula [Unknown]
  - Gastric infection [Recovering/Resolving]
  - Procedural intestinal perforation [Unknown]
  - Skin infection [Unknown]
  - Procedural complication [Recovered/Resolved]

NARRATIVE: CASE EVENT DATE: 201408
